FAERS Safety Report 4878291-2 (Version None)
Quarter: 2006Q1

REPORT INFORMATION
  Report Type: 
  Country: None (occurrence: None)
  Receive Date: 20060111
  Receipt Date: 20050812
  Transmission Date: 20060701
  Serious: Yes (Hospitalization, Disabling)
  Sender: FDA-Public Use
  Company Number: US-MERCK-0508USA02392

PATIENT
  Age: 58 Year
  Sex: Female
  Weight: 84 kg

DRUGS (2)
  1. VIOXX [Suspect]
     Indication: OSTEOARTHRITIS
     Route: 048
     Dates: start: 20031001, end: 20040901
  2. ACETAMINOPHEN [Concomitant]
     Route: 065

REACTIONS (3)
  - ANXIETY [None]
  - CHEST PAIN [None]
  - MYOCARDIAL INFARCTION [None]
